FAERS Safety Report 6971242-6 (Version None)
Quarter: 2010Q3

REPORT INFORMATION
  Report Type: 
  Country: None (occurrence: None)
  Receive Date: 20100908
  Receipt Date: 20100831
  Transmission Date: 20110219
  Serious: Yes (Hospitalization)
  Sender: FDA-Public Use
  Company Number: JP-BRISTOL-MYERS SQUIBB COMPANY-14954226

PATIENT
  Age: 62 Year
  Sex: Female
  Weight: 46 kg

DRUGS (8)
  1. ERBITUX [Suspect]
     Indication: COLON CANCER
     Dosage: 500MG, 1 IN 1 WK (08JUN09 + 17AUG09) 300MG, 1 IN 1 WK (22JUN09-06JUL09)
     Route: 042
     Dates: start: 20090608, end: 20090817
  2. IRINOTECAN HCL [Suspect]
     Indication: COLON CANCER
     Route: 042
     Dates: start: 20090608, end: 20090608
  3. RESTAMINE [Concomitant]
     Indication: PREMEDICATION
     Dosage: TABS; 7.1429 MG, 08JUN-08JUN, 22JUN-06JUL ALSO ON 17AUG09
     Route: 048
     Dates: start: 20090608, end: 20090817
  4. DECADRON [Concomitant]
     Indication: PREMEDICATION
     Dosage: 1.429 MG, 08JUN-08JUN09, 22JUN-06JUL, 17AUG-17AUG
     Route: 042
     Dates: start: 20090608, end: 20090817
  5. ALESION [Concomitant]
     Indication: PROPHYLAXIS
     Dosage: TAB, 2.8571MG; 08JUN09-08JUN09;22JUN09-06JUL09;17AUG-17AUG09
     Route: 048
     Dates: start: 20090608, end: 20090817
  6. ALESION [Concomitant]
     Indication: PREMEDICATION
     Dosage: TAB, 2.8571MG; 08JUN09-08JUN09;22JUN09-06JUL09;17AUG-17AUG09
     Route: 048
     Dates: start: 20090608, end: 20090817
  7. KYTRIL [Concomitant]
     Indication: SUPPORTIVE CARE
     Route: 042
     Dates: start: 20090608, end: 20090706
  8. TAKEPRON [Concomitant]
     Dosage: TABS
     Route: 048
     Dates: start: 20090709

REACTIONS (2)
  - DIARRHOEA [None]
  - GASTRIC ULCER [None]
